FAERS Safety Report 9773673 (Version 1)
Quarter: 2013Q4

REPORT INFORMATION
  Report Type: Spontaneous
  Country: US (occurrence: US)
  Receive Date: 20131219
  Receipt Date: 20131219
  Transmission Date: 20140711
  Serious: No
  Sender: FDA-Public Use
  Company Number: US-MYLANLABS-2013S1020568

PATIENT
  Age: 59 Year
  Sex: Male
  Weight: 80.74 kg

DRUGS (2)
  1. ATORVASTATIN CALCIUM TABLETS [Suspect]
     Indication: BLOOD CHOLESTEROL INCREASED
     Route: 048
     Dates: start: 201307, end: 201308
  2. BENICAR HCT [Concomitant]
     Dosage: TAKEN FOR ^YEARS^

REACTIONS (2)
  - Myalgia [Recovering/Resolving]
  - Muscle spasms [Recovering/Resolving]
